FAERS Safety Report 19394176 (Version 1)
Quarter: 2021Q2

REPORT INFORMATION
  Report Type: Spontaneous
  Country: GB (occurrence: GB)
  Receive Date: 20210609
  Receipt Date: 20210609
  Transmission Date: 20210717
  Serious: Yes (Other)
  Sender: FDA-Public Use
  Company Number: GB-MYLANLABS-2021M1033296

PATIENT
  Age: 95 Year
  Sex: Female
  Weight: 77 kg

DRUGS (18)
  1. DOXYCYCLINE. [Suspect]
     Active Substance: DOXYCYCLINE
     Indication: PRODUCT USED FOR UNKNOWN INDICATION
     Dosage: 100 MILLIGRAM, QD
     Dates: start: 20210525
  2. ZERODERM [Concomitant]
     Dosage: APPLY TWO TO FOUR TIMES A DAY WHEN REQUIRED
     Dates: start: 20210525
  3. CO?AMOXICLAV                       /00756801/ [Concomitant]
     Active Substance: AMOXICILLIN\CLAVULANIC ACID
     Dosage: 1 DOSAGE FORM, TID
     Dates: start: 20210316, end: 20210323
  4. SIMVASTATIN. [Concomitant]
     Active Substance: SIMVASTATIN
     Dosage: 1 DOSAGE FORM, HS
     Dates: start: 20210222
  5. VENTOLIN [Concomitant]
     Active Substance: ALBUTEROL SULFATE
     Dosage: 2 PUFFS AS REQUIRED 4 HOURLY
     Dates: start: 20210222
  6. DOXYCYCLINE. [Suspect]
     Active Substance: DOXYCYCLINE
     Dosage: 100 MILLIGRAM, BID
  7. APIXABAN [Concomitant]
     Active Substance: APIXABAN
     Dosage: 1 DOSAGE FORM, BID
     Dates: start: 20210412
  8. ZEROBASE                           /00103901/ [Concomitant]
     Dosage: APPLY TO DRY SKIN WHEN NEEDED
     Dates: start: 20210511
  9. CLOBETASONE BUTYRATE [Concomitant]
     Active Substance: CLOBETASONE BUTYRATE
     Indication: STEROID THERAPY
     Dosage: MODERATE POTENCY STEROID CREAM ? APPLY TWICE DA
     Dates: start: 20210525
  10. FUROSEMIDE. [Concomitant]
     Active Substance: FUROSEMIDE
     Dosage: 1 DOSAGE FORM, AM
     Dates: start: 20210222
  11. LISINOPRIL. [Concomitant]
     Active Substance: LISINOPRIL
     Dosage: 1 DOSAGE FORM, QD
     Dates: start: 20210222
  12. FOSTAIR [Concomitant]
     Active Substance: BECLOMETHASONE\FORMOTEROL
     Indication: CHRONIC OBSTRUCTIVE PULMONARY DISEASE
     Dosage: 2 DOSAGE FORM, QD
     Dates: start: 20210222, end: 20210412
  13. WARFARIN SODIUM. [Concomitant]
     Active Substance: WARFARIN SODIUM
     Dosage: AS DIRECTED
     Dates: start: 20210222, end: 20210412
  14. AMLODIPINE [Concomitant]
     Active Substance: AMLODIPINE BESYLATE
     Indication: ILL-DEFINED DISORDER
     Dosage: 1 DOSAGE FORM, AM
     Dates: start: 20210222
  15. TRIMBOW [Concomitant]
     Active Substance: BECLOMETHASONE DIPROPIONATE\FORMOTEROL FUMARATE\GLYCOPYRROLATE
     Dosage: 2 DOSAGE FORM, BID
     Dates: start: 20210412
  16. FEXOFENADINE [Concomitant]
     Active Substance: FEXOFENADINE HYDROCHLORIDE
     Indication: ILL-DEFINED DISORDER
     Dosage: 1 DOSAGE FORM
     Dates: start: 20210602
  17. FLUOXETINE [Concomitant]
     Active Substance: FLUOXETINE HYDROCHLORIDE
     Dosage: 1 DOSAGE FORM, QD
     Dates: start: 20210222
  18. MOXONIDINE [Concomitant]
     Active Substance: MOXONIDINE
     Dosage: 1 DOSAGE FORM
     Dates: start: 20210222

REACTIONS (2)
  - Pruritus [Recovering/Resolving]
  - Urticaria [Recovering/Resolving]

NARRATIVE: CASE EVENT DATE: 20210602
